FAERS Safety Report 9890904 (Version 3)
Quarter: 2014Q1

REPORT INFORMATION
  Report Type: Report from Study
  Country: CA (occurrence: CA)
  Receive Date: 20140212
  Receipt Date: 20140226
  Transmission Date: 20141002
  Serious: No
  Sender: FDA-Public Use
  Company Number: CA-009507513-1312CAN009537

PATIENT
  Age: 60 Year
  Sex: Male

DRUGS (5)
  1. VICTRELIS [Suspect]
     Indication: CHRONIC HEPATITIS C
     Dosage: 800 MG, TID
     Route: 048
     Dates: start: 20130628
  2. PEGASYS [Suspect]
     Indication: CHRONIC HEPATITIS C
     Dosage: 180 MICROGRAM, WEEKLY (0.5 ML PRE-FILLED SYRINGE)
     Route: 058
     Dates: start: 20130531
  3. COPEGUS [Suspect]
     Indication: CHRONIC HEPATITIS C
     Dosage: 1400 MG/DAY (49 TABLETS/WEEK)
     Route: 048
     Dates: start: 20130531
  4. PREDNISOLONE [Concomitant]
     Route: 065
  5. VIROPTIC [Concomitant]
     Route: 065

REACTIONS (4)
  - Nasopharyngitis [Unknown]
  - Vision blurred [Unknown]
  - Herpes zoster [Unknown]
  - Cheilitis [Unknown]
